FAERS Safety Report 7260800-X (Version None)
Quarter: 2011Q1

REPORT INFORMATION
  Report Type: 
  Country: None (occurrence: None)
  Receive Date: 20110130
  Receipt Date: 20101122
  Transmission Date: 20110831
  Serious: No
  Sender: FDA-Public Use
  Company Number: US-ABBOTT-10P-163-0687149-00

PATIENT
  Age: 38 Year
  Sex: Female

DRUGS (2)
  1. HUMIRA [Suspect]
     Indication: CROHN'S DISEASE
     Dates: start: 20101013
  2. INSULIN PUMP [Concomitant]
     Indication: PRODUCT USED FOR UNKNOWN INDICATION

REACTIONS (9)
  - NASOPHARYNGITIS [None]
  - SNEEZING [None]
  - FATIGUE [None]
  - RHINORRHOEA [None]
  - RASH [None]
  - WEIGHT INCREASED [None]
  - VULVOVAGINAL MYCOTIC INFECTION [None]
  - PILOERECTION [None]
  - PAIN [None]
